FAERS Safety Report 5598666-6 (Version None)
Quarter: 2008Q1

REPORT INFORMATION
  Report Type: 
  Country: None (occurrence: None)
  Receive Date: 20080117
  Receipt Date: 20080109
  Transmission Date: 20080703
  Serious: Yes (Hospitalization)
  Sender: FDA-Public Use
  Company Number: 2007-167126-NL

PATIENT
  Age: 41 Year
  Sex: Female

DRUGS (3)
  1. ETONOGESTREL [Suspect]
     Dosage: DF
     Dates: start: 20070531
  2. OMEPRAZOLE [Concomitant]
  3. TETRYZOLINE HYDROCHLORIDE [Concomitant]

REACTIONS (6)
  - BLOOD CREATINE PHOSPHOKINASE [None]
  - IMPAIRED WORK ABILITY [None]
  - METRORRHAGIA [None]
  - MYALGIA [None]
  - MYOGLOBIN BLOOD INCREASED [None]
  - PYELONEPHRITIS [None]
